FAERS Safety Report 14800964 (Version 1)
Quarter: 2018Q2

REPORT INFORMATION
  Report Type: Spontaneous
  Country: US (occurrence: US)
  Receive Date: 20180424
  Receipt Date: 20180424
  Transmission Date: 20180711
  Serious: Yes (Other)
  Sender: FDA-Public Use
  Company Number: US-009507513-1804USA009473

PATIENT
  Age: 62 Year
  Sex: Female

DRUGS (10)
  1. TURMERIC [Concomitant]
     Active Substance: HERBALS\TURMERIC
  2. FOSAMAX PLUS D [Suspect]
     Active Substance: ALENDRONATE SODIUM\CHOLECALCIFEROL
     Indication: OSTEOPENIA
     Dosage: UNKNOWN DOSE/ONCE WEEKLY
     Route: 048
     Dates: start: 2009, end: 2012
  3. SYNTHROID [Concomitant]
     Active Substance: LEVOTHYROXINE SODIUM
  4. BONIVA [Suspect]
     Active Substance: IBANDRONATE SODIUM
     Indication: OSTEOPENIA
     Dosage: ONCE A MONTH
     Dates: start: 2012, end: 2014
  5. CYANOCOBALAMIN. [Concomitant]
     Active Substance: CYANOCOBALAMIN
     Dosage: MONTHLY INJECTIONS
  6. VITAMINS (UNSPECIFIED) [Concomitant]
     Active Substance: VITAMINS
  7. CALCIUM (UNSPECIFIED) [Concomitant]
     Active Substance: CALCIUM
  8. CHOLECALCIFEROL [Concomitant]
     Active Substance: CHOLECALCIFEROL
  9. MENATETRENONE [Concomitant]
     Active Substance: MENATETRENONE
  10. OMEGA-3 ACIDS [Concomitant]
     Active Substance: OMEGA-3 FATTY ACIDS

REACTIONS (1)
  - Atypical femur fracture [Not Recovered/Not Resolved]

NARRATIVE: CASE EVENT DATE: 201503
